FAERS Safety Report 9267254 (Version 2)
Quarter: 2013Q2

REPORT INFORMATION
  Report Type: Spontaneous
  Country: US (occurrence: US)
  Receive Date: 20130502
  Receipt Date: 20130530
  Transmission Date: 20140414
  Serious: Yes (Other)
  Sender: FDA-Public Use
  Company Number: PHEH2013US009328

PATIENT
  Age: 62 Year
  Sex: Female
  Weight: 63.95 kg

DRUGS (12)
  1. DIOVAN HCT [Suspect]
     Dosage: 1 DF, QD (160 MG VALS/ 25 MG HCTZ)
     Dates: start: 20111202
  2. VITAFUSAL [Concomitant]
     Dosage: UNK UKN, UNK
  3. OMEGA 3 COMPLEX [Concomitant]
     Dosage: UNK UKN, UNK
  4. MULTIVITAMINS [Concomitant]
     Dosage: UNK UKN, UNK
  5. SIMVASTATIN [Concomitant]
     Indication: HYPERLIPIDAEMIA
     Dosage: 4 DF, QD
     Route: 048
     Dates: start: 20110302
  6. LOSEC                                   /CAN/ [Concomitant]
     Indication: ABDOMINAL DISCOMFORT
     Dosage: 4 DF, QD
     Route: 048
     Dates: start: 20130130
  7. IMITREX DF [Concomitant]
     Indication: MIGRAINE
     Dosage: 4 DF, UNK
     Route: 048
     Dates: start: 20120924
  8. LEVOTHYROXINE [Concomitant]
     Indication: HYPOTHYROIDISM
     Dosage: 4 DF, QD
     Route: 048
     Dates: start: 20110302
  9. TRAMADOL [Concomitant]
     Dosage: 4 DF, TID
     Route: 048
     Dates: start: 20110302
  10. ATENOLOL [Concomitant]
     Indication: HYPERTENSION
     Dosage: 4 DF, QD
     Route: 048
     Dates: start: 20120806
  11. DIOVAN [Concomitant]
     Indication: HYPERTENSION
     Dosage: 4 DF, QD
     Route: 048
     Dates: start: 20110302, end: 20111202
  12. ASA [Concomitant]
     Dosage: 4 DF, QD
     Route: 048
     Dates: start: 20110302

REACTIONS (1)
  - Breast cancer [Recovered/Resolved with Sequelae]
